FAERS Safety Report 5242153-1 (Version None)
Quarter: 2007Q1

REPORT INFORMATION
  Report Type: 
  Country: None (occurrence: None)
  Receive Date: 20070213
  Receipt Date: 20070116
  Transmission Date: 20070707
  Serious: Yes (Death)
  Sender: FDA-Public Use
  Company Number: 20073500

PATIENT
  Age: 49 Year
  Sex: Female

DRUGS (1)
  1. LIORESAL [Suspect]
     Indication: MUSCLE SPASTICITY
     Dosage: 300 MCG DAILY INTRATHECAL
     Route: 037

REACTIONS (1)
  - RESPIRATORY FAILURE [None]
